FAERS Safety Report 16002932 (Version 2)
Quarter: 2019Q2

REPORT INFORMATION
  Report Type: Spontaneous
  Country: US (occurrence: US)
  Receive Date: 20190225
  Receipt Date: 20190521
  Transmission Date: 20190711
  Serious: No
  Sender: FDA-Public Use
  Company Number: US-SA-2019SA047370

PATIENT
  Age: 12 Year
  Sex: Male

DRUGS (2)
  1. ALDURAZYME [Suspect]
     Active Substance: LARONIDASE
     Indication: MUCOPOLYSACCHARIDOSIS I
     Dosage: 14.5 MG
     Route: 041
     Dates: start: 20181213, end: 20181213
  2. ALDURAZYME [Suspect]
     Active Substance: LARONIDASE
     Dosage: UNK, UNK
     Route: 041
     Dates: start: 20181227

REACTIONS (1)
  - Malaise [Recovering/Resolving]
